FAERS Safety Report 4877983-9 (Version None)
Quarter: 2005Q4

REPORT INFORMATION
  Report Type: 
  Country: None (occurrence: None)
  Receive Date: 20051206
  Receipt Date: 20050908
  Transmission Date: 20060501
  Serious: No
  Sender: FDA-Public Use
  Company Number: USA0509107527

PATIENT
  Age: 45 Year
  Sex: Female

DRUGS (1)
  1. CYMBALTA [Suspect]
     Indication: DEPRESSION
     Dosage: 60 MG
     Dates: start: 20040101

REACTIONS (5)
  - CHILLS [None]
  - HOT FLUSH [None]
  - HYPERHIDROSIS [None]
  - PILOERECTION [None]
  - TEMPERATURE INTOLERANCE [None]
